FAERS Safety Report 7005404-9 (Version None)
Quarter: 2010Q3

REPORT INFORMATION
  Report Type: 
  Country: None (occurrence: None)
  Receive Date: 20100921
  Receipt Date: 20100910
  Transmission Date: 20110219
  Serious: Yes (Other)
  Sender: FDA-Public Use
  Company Number: GB-ROCHE-722113

PATIENT
  Sex: Male

DRUGS (3)
  1. CAPECITABINE [Suspect]
     Dosage: FOR 14 DAYS
     Route: 048
  2. AVASTIN [Suspect]
     Route: 042
     Dates: start: 20100525
  3. OXALIPLATIN [Suspect]
     Route: 065

REACTIONS (1)
  - TUMOUR PERFORATION [None]
